FAERS Safety Report 8929240 (Version 2)
Quarter: 2013Q4

REPORT INFORMATION
  Report Type: Spontaneous
  Country: GB (occurrence: None)
  Receive Date: 20121120
  Receipt Date: 20131002
  Transmission Date: 20140711
  Serious: Yes (Other)
  Sender: FDA-Public Use
  Company Number: AUR-APL-2012-04876

PATIENT
  Age: 53 Year
  Sex: Female
  Weight: 77 kg

DRUGS (9)
  1. CITALOPRAM (CITALOPRAM) [Suspect]
     Indication: PRODUCT USED FOR UNKNOWN INDICATION
     Route: 048
     Dates: start: 20121015, end: 20121029
  2. CODEINE PHOSPHATE [Concomitant]
  3. ETANERCEPT [Concomitant]
  4. LISINOPRIL [Concomitant]
  5. MEBEVERINE HYDROCHLORIDE [Concomitant]
  6. MORPHINE SULPHATE (MORPHINE SULFATE) [Concomitant]
  7. OMEPRAZOLE [Concomitant]
  8. PREMARIN (ESTROGENS CONJUGATED) [Concomitant]
  9. TRAMADOL [Concomitant]

REACTIONS (1)
  - Rheumatoid arthritis [None]
